FAERS Safety Report 4765151-0 (Version None)
Quarter: 2005Q3

REPORT INFORMATION
  Report Type: 
  Country: None (occurrence: None)
  Receive Date: 20050909
  Receipt Date: 20050802
  Transmission Date: 20060218
  Serious: Yes (Hospitalization)
  Sender: FDA-Public Use
  Company Number: BE-ABBOTT-05P-013-0307281-00

PATIENT
  Sex: Female
  Weight: 89.1 kg

DRUGS (16)
  1. ZEMPLAR [Suspect]
     Indication: HYPERPARATHYROIDISM
     Route: 042
     Dates: start: 20050629
  2. VALPROIC ACID [Concomitant]
     Indication: EPILEPSY
     Dates: start: 20040111
  3. LEVETIRACETAM [Concomitant]
     Indication: EPILEPSY
     Dates: start: 20050218
  4. FOLIC ACID [Concomitant]
     Indication: VITAMIN SUPPLEMENTATION
     Dates: start: 20050718
  5. IRON SACCHAROSE [Concomitant]
     Indication: MINERAL SUPPLEMENTATION
     Dates: start: 20031212
  6. R-HU ERYTHROPOETINE ALFA [Concomitant]
     Indication: ANAEMIA
     Dates: start: 20050406
  7. SODIUM POLYSTYRENE SULFONATE [Concomitant]
     Indication: BLOOD POTASSIUM INCREASED
     Dates: start: 20040628
  8. LEVOTHYROXINE SODIUM [Concomitant]
     Indication: AUTOIMMUNE THYROIDITIS
  9. CALCIUM CARBONATE [Concomitant]
     Indication: MINERAL SUPPLEMENTATION
     Dates: start: 20040121
  10. PAROXETINE HCL [Concomitant]
     Indication: DEPRESSION
     Dates: start: 20050315
  11. SIMVASTATIN [Concomitant]
     Indication: HYPERCHOLESTEROLAEMIA
     Dates: start: 20050523
  12. CLAVULIN [Concomitant]
     Indication: ESCHERICHIA SEPSIS
     Dates: start: 20050524, end: 20050718
  13. PARACETAMOL [Concomitant]
     Indication: PAIN
     Dates: start: 20050711
  14. GENTAMICIN [Concomitant]
     Indication: ESCHERICHIA SEPSIS
     Dates: start: 20050525, end: 20050715
  15. ALLOPURINOL [Concomitant]
     Indication: HYPERURICAEMIA
     Dates: start: 20030101, end: 20050718
  16. DESORELLE [Concomitant]
     Indication: CONTRACEPTION
     Dosage: NOT REPORTED
     Dates: start: 20050530

REACTIONS (6)
  - DIARRHOEA [None]
  - LEUKOPENIA [None]
  - MYALGIA [None]
  - NEPHRECTOMY [None]
  - PAIN [None]
  - PYREXIA [None]
